FAERS Safety Report 21161697 (Version 1)
Quarter: 2022Q3

REPORT INFORMATION
  Report Type: Spontaneous
  Country: US (occurrence: US)
  Receive Date: 20220802
  Receipt Date: 20220802
  Transmission Date: 20221027
  Serious: No
  Sender: FDA-Public Use
  Company Number: US-RVL_Pharmaceuticals-USA-POI1255202200228

PATIENT
  Age: 51 Year
  Sex: Female

DRUGS (2)
  1. UPNEEQ [Suspect]
     Active Substance: OXYMETAZOLINE HYDROCHLORIDE
     Indication: Blepharospasm
     Dosage: OU
     Route: 047
     Dates: start: 20220621, end: 20220623
  2. UPNEEQ [Suspect]
     Active Substance: OXYMETAZOLINE HYDROCHLORIDE
     Dosage: OU
     Route: 047
     Dates: start: 20220609, end: 20220616

REACTIONS (4)
  - Chest discomfort [Recovering/Resolving]
  - Dyspnoea [Recovering/Resolving]
  - Dyspnoea [Recovering/Resolving]
  - Drug effect less than expected [Recovered/Resolved]

NARRATIVE: CASE EVENT DATE: 20220609
